FAERS Safety Report 5739245-7 (Version None)
Quarter: 2008Q2

REPORT INFORMATION
  Report Type: 
  Country: None (occurrence: None)
  Receive Date: 20080515
  Receipt Date: 20080510
  Transmission Date: 20081010
  Serious: Yes (Hospitalization)
  Sender: FDA-Public Use
  Company Number: PL-AMGEN-UK262511

PATIENT
  Sex: Male
  Weight: 76 kg

DRUGS (9)
  1. PANITUMUMAB [Suspect]
     Indication: COLORECTAL CANCER
     Route: 042
     Dates: start: 20071205, end: 20080110
  2. BETAXOLOL [Concomitant]
     Dates: start: 20040101
  3. AMLODIPINE [Concomitant]
     Dates: start: 20040101
  4. OXALIPLATIN [Concomitant]
     Route: 042
     Dates: start: 20080110, end: 20080110
  5. FLUOROURACIL [Concomitant]
     Route: 042
     Dates: start: 20080110, end: 20080111
  6. FLUOROURACIL [Concomitant]
     Route: 042
     Dates: start: 20080110, end: 20080110
  7. FLUOROURACIL [Concomitant]
     Route: 042
     Dates: start: 20080111
  8. LEUCOVORIN CALCIUM [Concomitant]
     Dates: start: 20080110
  9. FENTANYL CITRATE [Concomitant]
     Dates: start: 20071025

REACTIONS (2)
  - ANOREXIA [None]
  - DIARRHOEA [None]
